FAERS Safety Report 7570635-6 (Version None)
Quarter: 2011Q2

REPORT INFORMATION
  Report Type: 
  Country: None (occurrence: None)
  Receive Date: 20110620
  Receipt Date: 20110614
  Transmission Date: 20111010
  Serious: Yes (Death)
  Sender: FDA-Public Use
  Company Number: 2011SP027923

PATIENT
  Age: 44 Year
  Sex: Female

DRUGS (6)
  1. TEMODAL [Suspect]
     Indication: GLIOBLASTOMA
     Dosage: PO
     Route: 048
     Dates: start: 20110101, end: 20110505
  2. KETOROLAC (KETOROLAC) [Suspect]
     Indication: PHARYNGITIS
     Dosage: 10 MG, QD, PO
     Route: 048
     Dates: start: 20110504, end: 20110505
  3. OMEPRAZOLE [Concomitant]
  4. FORECORTIN [Concomitant]
  5. AUGMENTIN '125' [Suspect]
     Indication: PHARYNGITIS
     Dosage: 1 DF, QD, PO
     Route: 048
     Dates: start: 20110504, end: 20110505
  6. KEPPRA [Suspect]
     Indication: GLIOBLASTOMA
     Dosage: 1 GM, Q12H, PO
     Route: 048
     Dates: start: 20110101, end: 20110505

REACTIONS (8)
  - UPPER GASTROINTESTINAL HAEMORRHAGE [None]
  - MULTI-ORGAN FAILURE [None]
  - TOXIC EPIDERMAL NECROLYSIS [None]
  - PNEUMONIA [None]
  - THROMBOCYTOPENIA [None]
  - RENAL FAILURE ACUTE [None]
  - PHARYNGITIS [None]
  - LEUKOPENIA [None]
